FAERS Safety Report 10870987 (Version 2)
Quarter: 2015Q2

REPORT INFORMATION
  Report Type: Report from Study
  Country: US (occurrence: US)
  Receive Date: 20150226
  Receipt Date: 20150427
  Transmission Date: 20150821
  Serious: Yes (Death, Hospitalization, Other)
  Sender: FDA-Public Use
  Company Number: US-GILEAD-2015-0139182

PATIENT
  Age: 61 Year
  Sex: Female

DRUGS (15)
  1. AMBRISENTAN [Suspect]
     Active Substance: AMBRISENTAN
     Indication: COR PULMONALE CHRONIC
     Dosage: 10 MG, QD
     Route: 048
     Dates: start: 20141201, end: 20150203
  2. AMBRISENTAN [Suspect]
     Active Substance: AMBRISENTAN
     Indication: CHRONIC RIGHT VENTRICULAR FAILURE
  3. DILTIAZEM [Concomitant]
     Active Substance: DILTIAZEM
  4. GLIPIZIDE. [Concomitant]
     Active Substance: GLIPIZIDE
  5. ONDANSETRON [Concomitant]
     Active Substance: ONDANSETRON
  6. METOLAZONE. [Concomitant]
     Active Substance: METOLAZONE
  7. SILDENAFIL. [Concomitant]
     Active Substance: SILDENAFIL
  8. PREDNISONE. [Concomitant]
     Active Substance: PREDNISONE
  9. MOMETASONE [Concomitant]
     Active Substance: MOMETASONE
  10. AMBRISENTAN [Suspect]
     Active Substance: AMBRISENTAN
     Indication: PULMONARY FIBROSIS
  11. METFORMIN [Concomitant]
     Active Substance: METFORMIN HYDROCHLORIDE
  12. ATORVASTATIN [Concomitant]
     Active Substance: ATORVASTATIN
  13. ALBUTEROL                          /00139501/ [Concomitant]
     Active Substance: ALBUTEROL
  14. FUROSEMIDE. [Concomitant]
     Active Substance: FUROSEMIDE
  15. WARFARIN [Concomitant]
     Active Substance: WARFARIN

REACTIONS (7)
  - Death [Fatal]
  - Atrial fibrillation [Not Recovered/Not Resolved]
  - Ventricular tachycardia [Recovered/Resolved]
  - Pneumonia [Not Recovered/Not Resolved]
  - Respiratory distress [Not Recovered/Not Resolved]
  - Fluid overload [Recovering/Resolving]
  - Sepsis [Recovered/Resolved]

NARRATIVE: CASE EVENT DATE: 20150203
